FAERS Safety Report 5810569-8 (Version None)
Quarter: 2008Q3

REPORT INFORMATION
  Report Type: 
  Country: None (occurrence: None)
  Receive Date: 20080715
  Receipt Date: 20080703
  Transmission Date: 20090109
  Serious: Yes (Other)
  Sender: FDA-Public Use
  Company Number: IE-PFIZER INC-2008056675

PATIENT
  Age: 76 Year
  Sex: Male

DRUGS (1)
  1. LINEZOLID [Suspect]

REACTIONS (2)
  - CATHETER RELATED INFECTION [None]
  - PATHOGEN RESISTANCE [None]
